FAERS Safety Report 20684025 (Version 1)
Quarter: 2022Q2

REPORT INFORMATION
  Report Type: Spontaneous
  Country: US (occurrence: None)
  Receive Date: 20220405
  Receipt Date: 20220405
  Transmission Date: 20220721
  Serious: Yes (Other)
  Sender: FDA-Public Use
  Company Number: None

PATIENT
  Age: 73 Year
  Sex: Male
  Weight: 67.13 kg

DRUGS (14)
  1. DUPIXENT [Suspect]
     Active Substance: DUPILUMAB
     Indication: Atopy
     Dosage: FREQUENCY : EVERY OTHER WEEK;?
     Route: 058
     Dates: start: 20220105, end: 20220302
  2. LORAZEPAM [Concomitant]
  3. CICLOPIROX [Concomitant]
  4. External Gel [Concomitant]
  5. ESCITALOPRAM [Concomitant]
  6. SIMVASTATIN [Concomitant]
  7. HYDROXYZINE [Concomitant]
  8. Haibetasol [Concomitant]
  9. External Cream [Concomitant]
  10. Triamcinolone Acetate Ext cream [Concomitant]
  11. NEBIVOLOL [Concomitant]
  12. LOSARTAN [Concomitant]
  13. MONTELUKAST [Concomitant]
  14. PREDNISONE [Concomitant]

REACTIONS (6)
  - Facial pain [None]
  - Pain in jaw [None]
  - Nodule [None]
  - Pain of skin [None]
  - Ocular hyperaemia [None]
  - Pain [None]

NARRATIVE: CASE EVENT DATE: 20220313
